FAERS Safety Report 5067427-9 (Version None)
Quarter: 2006Q3

REPORT INFORMATION
  Report Type: 
  Country: None (occurrence: None)
  Receive Date: 20060726
  Receipt Date: 20060711
  Transmission Date: 20061208
  Serious: Yes (Hospitalization)
  Sender: FDA-Public Use
  Company Number: 35157

PATIENT
  Age: 5 Year
  Sex: Male

DRUGS (1)
  1. CYCLOGYL [Suspect]
     Dosage: 4 GITS OU ONCE OPHT
     Route: 047

REACTIONS (15)
  - AGITATION [None]
  - AUTISM [None]
  - BLOOD PRESSURE DIASTOLIC INCREASED [None]
  - COLOUR BLINDNESS [None]
  - CONFUSIONAL STATE [None]
  - DISORIENTATION [None]
  - ERYTHROPSIA [None]
  - HALLUCINATION [None]
  - MYDRIASIS [None]
  - OVERDOSE [None]
  - PERSONALITY CHANGE [None]
  - PRURITUS [None]
  - PSYCHOMOTOR HYPERACTIVITY [None]
  - PUPILLARY REFLEX IMPAIRED [None]
  - RESTLESSNESS [None]
